FAERS Safety Report 14836181 (Version 7)
Quarter: 2019Q1

REPORT INFORMATION
  Report Type: Spontaneous
  Country: US (occurrence: US)
  Receive Date: 20180502
  Receipt Date: 20190208
  Transmission Date: 20190417
  Serious: Yes (Hospitalization, Other)
  Sender: FDA-Public Use
  Company Number: US-PFIZER INC-2018178659

PATIENT
  Age: 66 Year
  Sex: Male

DRUGS (2)
  1. DAPTOMYCIN. [Suspect]
     Active Substance: DAPTOMYCIN
     Indication: BACTERAEMIA
     Dosage: 900 MG, 1X/DAY
     Route: 042
     Dates: start: 20180420, end: 20180423
  2. DAPTOMYCIN. [Suspect]
     Active Substance: DAPTOMYCIN
     Dosage: 900 MG, DAILY
     Route: 042
     Dates: start: 20180423, end: 20180425

REACTIONS (7)
  - Poor quality product administered [Unknown]
  - Pyrexia [Recovered/Resolved]
  - Product complaint [Unknown]
  - Tremor [Unknown]
  - Drug hypersensitivity [Unknown]
  - Chills [Recovered/Resolved]
  - Dyspnoea [Recovered/Resolved]

NARRATIVE: CASE EVENT DATE: 20180424
